FAERS Safety Report 21735286 (Version 1)
Quarter: 2022Q4

REPORT INFORMATION
  Report Type: Spontaneous
  Country: GB (occurrence: GB)
  Receive Date: 20221215
  Receipt Date: 20221215
  Transmission Date: 20230113
  Serious: Yes (Other)
  Sender: FDA-Public Use
  Company Number: GB-PFIZER INC-PV202200124192

PATIENT
  Age: 75 Year
  Sex: Female

DRUGS (1)
  1. XELJANZ [Suspect]
     Active Substance: TOFACITINIB CITRATE
     Indication: Rheumatoid arthritis
     Dosage: 5 MG

REACTIONS (6)
  - Cardiac pacemaker insertion [Recovered/Resolved]
  - Fall [Recovered/Resolved]
  - Impaired healing [Recovered/Resolved]
  - Wound infection [Recovered/Resolved]
  - Infection [Recovered/Resolved]
  - Wound [Recovered/Resolved]
